FAERS Safety Report 6743464-0 (Version None)
Quarter: 2010Q2

REPORT INFORMATION
  Report Type: 
  Country: None (occurrence: None)
  Receive Date: 20100527
  Receipt Date: 20090526
  Transmission Date: 20101027
  Serious: No
  Sender: FDA-Public Use
  Company Number: US-BAUSCH-2008BL004960

PATIENT
  Age: 52 Year
  Sex: Female

DRUGS (2)
  1. FLUOCINOLONE ACETONIDE [Suspect]
     Indication: UVEITIS
     Route: 031
     Dates: start: 20070102, end: 20080819
  2. ANECORTAVE ACETATE [Concomitant]
     Indication: INTRAOCULAR PRESSURE TEST
     Route: 031
     Dates: start: 20070207, end: 20071008

REACTIONS (1)
  - DRUG EFFECT DECREASED [None]
